FAERS Safety Report 23031758 (Version 1)
Quarter: 2023Q4

REPORT INFORMATION
  Report Type: Spontaneous
  Country: CN (occurrence: CN)
  Receive Date: 20231005
  Receipt Date: 20231005
  Transmission Date: 20240110
  Serious: Yes (Life-Threatening, Other)
  Sender: FDA-Public Use
  Company Number: CN-009507513-2310CHN000427

PATIENT
  Age: 62 Year
  Sex: Male
  Weight: 74 kg

DRUGS (3)
  1. CILASTATIN SODIUM\IMIPENEM [Suspect]
     Active Substance: CILASTATIN SODIUM\IMIPENEM
     Indication: Diffuse large B-cell lymphoma
     Dosage: 1 GRAM, TID
     Route: 041
     Dates: start: 20230823, end: 20230825
  2. CILASTATIN SODIUM\IMIPENEM [Suspect]
     Active Substance: CILASTATIN SODIUM\IMIPENEM
     Dosage: 0.5 GRAM, Q8H
     Route: 041
     Dates: start: 20230825
  3. SODIUM CHLORIDE [Concomitant]
     Active Substance: SODIUM CHLORIDE
     Dosage: 0.9%; 50 ML, TID
     Route: 041
     Dates: start: 20230823, end: 20230825

REACTIONS (4)
  - Seizure [Recovering/Resolving]
  - Oxygen saturation decreased [Recovering/Resolving]
  - Heart rate abnormal [Recovering/Resolving]
  - Product use in unapproved indication [Unknown]

NARRATIVE: CASE EVENT DATE: 20230825
